FAERS Safety Report 8620281-8 (Version None)
Quarter: 2012Q3

REPORT INFORMATION
  Report Type: 
  Country: None (occurrence: None)
  Receive Date: 20120824
  Receipt Date: 20120816
  Transmission Date: 20120928
  Serious: Yes (Hospitalization)
  Sender: FDA-Public Use
  Company Number: US-ABBOTT-12P-163-0969659-00

PATIENT
  Age: 28 Year
  Sex: Male

DRUGS (5)
  1. KLONOPIN [Concomitant]
     Indication: ANXIETY
  2. SEROQUEL [Concomitant]
     Indication: DEPRESSION
  3. CELEXA [Concomitant]
     Indication: DEPRESSION
  4. HUMIRA [Suspect]
     Indication: CROHN'S DISEASE
     Dates: start: 20101001
  5. DEMEROL [Suspect]
     Indication: PRODUCT USED FOR UNKNOWN INDICATION

REACTIONS (7)
  - ARTHROPOD BITE [None]
  - INFUSION SITE PAIN [None]
  - COUGH [None]
  - WOUND NECROSIS [None]
  - INFUSION SITE PRURITUS [None]
  - SNEEZING [None]
  - OROPHARYNGEAL PAIN [None]
